APPROVED DRUG PRODUCT: ZOFRAN ODT
Active Ingredient: ONDANSETRON
Strength: 8MG **Federal Register determination that product was not discontinued or withdrawn for safety or effectiveness reasons**
Dosage Form/Route: TABLET, ORALLY DISINTEGRATING;ORAL
Application: N020781 | Product #002
Applicant: SANDOZ INC
Approved: Jan 27, 1999 | RLD: Yes | RS: No | Type: DISCN